FAERS Safety Report 5712013-8 (Version None)
Quarter: 2008Q2

REPORT INFORMATION
  Report Type: 
  Country: None (occurrence: None)
  Receive Date: 20080417
  Receipt Date: 20080409
  Transmission Date: 20081010
  Serious: Yes (Death, Hospitalization)
  Sender: FDA-Public Use
  Company Number: 082-C5013-08011516

PATIENT
  Age: 62 Year
  Sex: Female

DRUGS (8)
  1. CC-5013 (LENALIDOMIDE) (CAPSULES) [Suspect]
     Indication: MULTIPLE MYELOMA
     Dosage: 25 MG, DAILY, ORAL
     Route: 048
     Dates: start: 20071213, end: 20080127
  2. MELPHALAN (MELPHALAN) [Suspect]
     Indication: MULTIPLE MYELOMA
     Dates: start: 20071213, end: 20080127
  3. PREDNISONE TAB [Suspect]
     Indication: MULTIPLE MYELOMA
     Dates: start: 20071213, end: 20080128
  4. AREDIA [Concomitant]
  5. CALCITONIN (CALCIIONIN) [Concomitant]
  6. OMEPRADEX (OMEPRAZOLE ) [Concomitant]
  7. MICROPIRIN (ACETYLSALICYLIC ACID) [Concomitant]
  8. BONDORMIN (BROTIZOLAM ) [Concomitant]

REACTIONS (22)
  - ANAEMIA [None]
  - BONE PAIN [None]
  - COMPRESSION FRACTURE [None]
  - CONDITION AGGRAVATED [None]
  - CONFUSIONAL STATE [None]
  - DISEASE PROGRESSION [None]
  - DYSPNOEA [None]
  - FALL [None]
  - FOLATE DEFICIENCY [None]
  - HEPATOMEGALY [None]
  - HUMERUS FRACTURE [None]
  - HYPERPHOSPHATAEMIA [None]
  - LEUKAEMIA PLASMACYTIC [None]
  - LEUKOPENIA [None]
  - LOSS OF CONSCIOUSNESS [None]
  - NO THERAPEUTIC RESPONSE [None]
  - OSTEOPENIA [None]
  - PAIN [None]
  - RENAL IMPAIRMENT [None]
  - ROTATOR CUFF SYNDROME [None]
  - SPINAL COMPRESSION FRACTURE [None]
  - THROMBOCYTOPENIA [None]
